FAERS Safety Report 19399095 (Version 1)
Quarter: 2021Q2

REPORT INFORMATION
  Report Type: Spontaneous
  Country: US (occurrence: US)
  Receive Date: 20210610
  Receipt Date: 20210610
  Transmission Date: 20210717
  Serious: Yes (Hospitalization)
  Sender: FDA-Public Use
  Company Number: US-MYLANLABS-2021M1033121

PATIENT
  Sex: Female

DRUGS (12)
  1. LORAZEPAM. [Suspect]
     Active Substance: LORAZEPAM
     Indication: CATATONIA
     Dosage: 1 MILLIGRAM, QD
     Route: 064
  2. FOLIC ACID. [Suspect]
     Active Substance: FOLIC ACID
     Indication: PRODUCT USED FOR UNKNOWN INDICATION
     Dosage: UNK
     Route: 064
  3. MEMANTINE. [Suspect]
     Active Substance: MEMANTINE
     Dosage: 10 MILLIGRAM DURING ECT
     Route: 064
  4. MEMANTINE. [Suspect]
     Active Substance: MEMANTINE
     Indication: CATATONIA
     Dosage: 5 MILLIGRAM, QD STARTING DOSE; INCREASED AFTER IMPROVEMENT?..
     Route: 064
  5. LORAZEPAM. [Suspect]
     Active Substance: LORAZEPAM
     Dosage: 1 MILLIGRAM DURING ELECTROCONVULSIVE THERAPY
     Route: 064
  6. PENICILLIN G                       /00000901/ [Suspect]
     Active Substance: PENICILLIN G
     Indication: SYPHILIS
     Dosage: UNK
     Route: 064
  7. RISPERIDONE. [Suspect]
     Active Substance: RISPERIDONE
     Indication: PSYCHOMOTOR RETARDATION
     Dosage: 4 MILLIGRAM, QD 1MG IN MORNING AND 3MG AT BEDTIME
     Route: 064
  8. RISPERIDONE. [Suspect]
     Active Substance: RISPERIDONE
     Indication: ABNORMAL BEHAVIOUR
  9. MEMANTINE. [Suspect]
     Active Substance: MEMANTINE
     Dosage: 15 MILLIGRAM, QD 10 MG IN THE MORNING AND 5 MG AT NIGHT.
     Route: 064
  10. LORAZEPAM. [Suspect]
     Active Substance: LORAZEPAM
     Dosage: 1 MILLIGRAM, TID 3 TIMES A DAY
     Route: 064
  11. RISPERIDONE. [Suspect]
     Active Substance: RISPERIDONE
     Indication: SPEECH DISORDER
  12. NITROFURANTOIN. [Suspect]
     Active Substance: NITROFURANTOIN
     Indication: URINARY TRACT INFECTION
     Dosage: UNK
     Route: 064

REACTIONS (5)
  - Infantile apnoea [Recovered/Resolved]
  - Retinopathy of prematurity [Recovering/Resolving]
  - Foetal exposure during pregnancy [Unknown]
  - Neonatal respiratory distress syndrome [Unknown]
  - Anaemia neonatal [Recovering/Resolving]
